FAERS Safety Report 17250615 (Version 1)
Quarter: 2020Q1

REPORT INFORMATION
  Report Type: Spontaneous
  Country: IT (occurrence: IT)
  Receive Date: 20200109
  Receipt Date: 20200109
  Transmission Date: 20200409
  Serious: No
  Sender: FDA-Public Use
  Company Number: IT-ALKEM LABORATORIES LIMITED-IT-ALKEM-2019-10408

PATIENT
  Sex: Female

DRUGS (1)
  1. ITRACONAZOLE. [Suspect]
     Active Substance: ITRACONAZOLE
     Indication: MENINGITIS CRYPTOCOCCAL
     Dosage: UNK

REACTIONS (1)
  - Exposure during pregnancy [Unknown]
